FAERS Safety Report 16690445 (Version 2)
Quarter: 2019Q3

REPORT INFORMATION
  Report Type: Spontaneous
  Country: US (occurrence: US)
  Receive Date: 20190810
  Receipt Date: 20190902
  Transmission Date: 20191004
  Serious: No
  Sender: FDA-Public Use
  Company Number: US-ASTRAZENECA-2019SF06569

PATIENT
  Age: 5896 Day
  Sex: Female
  Weight: 56.7 kg

DRUGS (1)
  1. PULMICORT FLEXHALER [Suspect]
     Active Substance: BUDESONIDE
     Indication: ASTHMA
     Route: 055
     Dates: start: 20190719

REACTIONS (3)
  - Asthma [Unknown]
  - Incorrect dose administered [Unknown]
  - Device failure [Unknown]

NARRATIVE: CASE EVENT DATE: 20190719
